FAERS Safety Report 15195610 (Version 1)
Quarter: 2018Q3

REPORT INFORMATION
  Report Type: Spontaneous
  Country: US (occurrence: US)
  Receive Date: 20180725
  Receipt Date: 20180725
  Transmission Date: 20181010
  Serious: Yes (Other)
  Sender: FDA-Public Use
  Company Number: US-BAYER-2018-134980

PATIENT
  Age: 71 Year
  Sex: Male

DRUGS (2)
  1. XOFIGO [Suspect]
     Active Substance: RADIUM RA-223 DICHLORIDE
     Indication: PROSTATE CANCER METASTATIC
     Dosage: UNK
     Route: 042
     Dates: start: 20180613, end: 20180613
  2. XOFIGO [Suspect]
     Active Substance: RADIUM RA-223 DICHLORIDE
     Indication: PROSTATE CANCER METASTATIC
     Dosage: UNK
     Route: 042
     Dates: start: 20180711, end: 20180711

REACTIONS (8)
  - Cancer pain [None]
  - Weight decreased [Not Recovered/Not Resolved]
  - Fatigue [None]
  - Fatigue [None]
  - Nausea [None]
  - Injection site pain [None]
  - Malaise [None]
  - Diarrhoea [None]

NARRATIVE: CASE EVENT DATE: 201806
